FAERS Safety Report 11433009 (Version 1)
Quarter: 2015Q3

REPORT INFORMATION
  Report Type: Spontaneous
  Country: US (occurrence: None)
  Receive Date: 20150828
  Receipt Date: 20150828
  Transmission Date: 20151125
  Serious: Yes (Other)
  Sender: FDA-Public Use
  Company Number: None

PATIENT
  Age: 4 Year
  Sex: Male
  Weight: 19.6 kg

DRUGS (6)
  1. ALPHANATE [Suspect]
     Active Substance: HUMAN COAGULATION FACTOR VIII/VON WILLEBRAND FACTOR COMPLEX
     Indication: FACTOR VIII DEFICIENCY
     Dosage: 500 IU ?EVERY 48 HOURS ?INTRAVENOUS
     Route: 042
     Dates: start: 20150812, end: 20150812
  2. ZYRTEC [Concomitant]
     Active Substance: CETIRIZINE HYDROCHLORIDE
  3. SINGULAIR [Concomitant]
     Active Substance: MONTELUKAST SODIUM
  4. NORMAL SALINE FLUSHES [Concomitant]
  5. FLOVENT 44 MCG/ACTUATION [Concomitant]
  6. HEPARIN [Concomitant]
     Active Substance: HEPARIN SODIUM

REACTIONS (2)
  - Hyperhidrosis [None]
  - Dermatitis allergic [None]

NARRATIVE: CASE EVENT DATE: 20150812
